FAERS Safety Report 10261229 (Version 2)
Quarter: 2014Q2

REPORT INFORMATION
  Report Type: Spontaneous
  Country: CH (occurrence: CH)
  Receive Date: 20140626
  Receipt Date: 20140626
  Transmission Date: 20141212
  Serious: Yes (Other)
  Sender: FDA-Public Use
  Company Number: CH-BIOGENIDEC-2014BI039668

PATIENT
  Age: 49 Year
  Sex: Female

DRUGS (9)
  1. AVONEX [Suspect]
     Indication: RELAPSING-REMITTING MULTIPLE SCLEROSIS
     Route: 030
     Dates: start: 201203
  2. AVONEX [Suspect]
     Indication: RELAPSING-REMITTING MULTIPLE SCLEROSIS
     Route: 030
  3. AVONEX [Suspect]
     Indication: RELAPSING-REMITTING MULTIPLE SCLEROSIS
     Route: 030
  4. AVONEX [Suspect]
     Indication: RELAPSING-REMITTING MULTIPLE SCLEROSIS
     Route: 030
  5. LYRICA [Concomitant]
     Indication: TRIGEMINAL NEURALGIA
     Route: 048
     Dates: start: 2011
  6. MAGNESIUM DIASPORAL [Concomitant]
     Indication: MUSCLE SPASMS
     Route: 048
  7. NOVALGIN [Concomitant]
     Indication: TRIGEMINAL NEURALGIA
     Route: 048
     Dates: start: 201105
  8. SIMILASAN [Concomitant]
     Dates: start: 201109
  9. PREDNISONE [Concomitant]
     Dates: start: 201109

REACTIONS (5)
  - Migraine without aura [Not Recovered/Not Resolved]
  - Trigeminal neuralgia [Recovered/Resolved]
  - Immunology test abnormal [Unknown]
  - Influenza like illness [Recovered/Resolved]
  - Anxiety [Unknown]
